FAERS Safety Report 6295748-0 (Version None)
Quarter: 2009Q3

REPORT INFORMATION
  Report Type: 
  Country: None (occurrence: None)
  Receive Date: 20090804
  Receipt Date: 20090724
  Transmission Date: 20100115
  Serious: Yes (Life-Threatening)
  Sender: FDA-Public Use
  Company Number: FR-PFIZER INC-2009248671

PATIENT
  Age: 37 Year

DRUGS (8)
  1. HYDROXYZINE HCL [Suspect]
     Indication: GENERAL ANAESTHESIA
     Dosage: 150 MG, ONCE
     Route: 048
     Dates: start: 20081117, end: 20081118
  2. PARACETAMOL [Suspect]
     Dosage: 1 G, ONCE
     Route: 042
     Dates: start: 20081118, end: 20081118
  3. CELOCURIN [Suspect]
     Indication: GENERAL ANAESTHESIA
     Dosage: 100 MG, ONCE
     Route: 042
     Dates: start: 20081118, end: 20081118
  4. DIPRIVAN [Suspect]
     Dosage: 200 MG, ONCE
     Route: 042
     Dates: start: 20081118, end: 20081118
  5. SUFENTANIL [Suspect]
     Indication: GENERAL ANAESTHESIA
     Dosage: UNK
     Route: 042
     Dates: start: 20081118, end: 20081118
  6. CEFAZOLIN [Suspect]
     Indication: PROPHYLAXIS
     Dosage: 2 G, ONCE
     Route: 042
     Dates: start: 20081118, end: 20081118
  7. BLEU PATENTE V ^GUERBET^ [Suspect]
     Dosage: UNK
     Route: 023
     Dates: start: 20081118, end: 20081118
  8. SEVORANE [Suspect]
     Dosage: UNK
     Route: 042
     Dates: start: 20081118, end: 20081118

REACTIONS (1)
  - ANAPHYLACTIC SHOCK [None]
